FAERS Safety Report 4761457-X (Version None)
Quarter: 2005Q3

REPORT INFORMATION
  Report Type: 
  Country: None (occurrence: None)
  Receive Date: 20050902
  Receipt Date: 20050902
  Transmission Date: 20060218
  Serious: No
  Sender: FDA-Public Use
  Company Number: None

PATIENT
  Age: 71 Year
  Sex: Male
  Weight: 92.0802 kg

DRUGS (2)
  1. IRESSA [Suspect]
     Indication: RENAL CELL CARCINOMA STAGE UNSPECIFIED
     Dosage: 250 MG PO QD
     Route: 048
     Dates: start: 20050627, end: 20050831
  2. PEG-INTRON [Suspect]
     Indication: RENAL CELL CARCINOMA STAGE UNSPECIFIED
     Dosage: 400 MG SW ONCE A WEEK
     Dates: start: 20050627, end: 20050831

REACTIONS (5)
  - ANOREXIA [None]
  - BLOOD SODIUM DECREASED [None]
  - FATIGUE [None]
  - INSOMNIA [None]
  - ORAL INTAKE REDUCED [None]
